FAERS Safety Report 21905631 (Version 1)
Quarter: 2023Q1

REPORT INFORMATION
  Report Type: Spontaneous
  Country: US (occurrence: US)
  Receive Date: 20230124
  Receipt Date: 20230124
  Transmission Date: 20230418
  Serious: No
  Sender: FDA-Public Use
  Company Number: US-MYLANLABS-2023M1005155

PATIENT
  Sex: Female
  Weight: 73.94 kg

DRUGS (2)
  1. XULANE [Suspect]
     Active Substance: ETHINYL ESTRADIOL\NORELGESTROMIN
     Indication: Heavy menstrual bleeding
     Dosage: 150/35 MICROGRAM, QD (ONCE A WEEK)
     Route: 062
  2. XULANE [Suspect]
     Active Substance: ETHINYL ESTRADIOL\NORELGESTROMIN
     Indication: Contraception

REACTIONS (2)
  - Heavy menstrual bleeding [Unknown]
  - Product adhesion issue [Unknown]
